FAERS Safety Report 8470747-9 (Version None)
Quarter: 2012Q2

REPORT INFORMATION
  Report Type: 
  Country: None (occurrence: None)
  Receive Date: 20120627
  Receipt Date: 20120619
  Transmission Date: 20120825
  Serious: Yes (Hospitalization)
  Sender: FDA-Public Use
  Company Number: US-BAYER-2012-034654

PATIENT
  Age: 37 Year
  Sex: Female
  Weight: 79.365 kg

DRUGS (5)
  1. NASONEX [Concomitant]
     Dosage: 50 UNK, UNK
     Route: 045
     Dates: start: 20090407
  2. HYDROXYZINE HCL [Concomitant]
     Indication: PRURITUS
     Dosage: 10 MG, PRN
     Route: 048
     Dates: start: 20090706
  3. YAZ [Suspect]
     Indication: CONTRACEPTION
     Dosage: UNK
     Dates: start: 20090401, end: 20090801
  4. TRIAMCINOLONE ACETONIDE [Concomitant]
     Indication: RASH
     Dosage: 05 %, BID
     Route: 061
     Dates: start: 20090407
  5. PRILOSEC [Concomitant]
     Dosage: UNK
     Route: 048
     Dates: start: 20090706

REACTIONS (2)
  - CHOLECYSTITIS ACUTE [None]
  - PULMONARY EMBOLISM [None]
